FAERS Safety Report 4630648-0 (Version None)
Quarter: 2005Q2

REPORT INFORMATION
  Report Type: 
  Country: None (occurrence: None)
  Receive Date: 20050408
  Receipt Date: 20050329
  Transmission Date: 20051028
  Serious: Yes (Other)
  Sender: FDA-Public Use
  Company Number: AU-SANOFI-SYNTHELABO-A01200501929

PATIENT
  Age: 78 Year
  Sex: Male

DRUGS (1)
  1. ELIGARD [Suspect]
     Indication: DRUG USE FOR UNKNOWN INDICATION
     Dosage: UNK
     Route: 058

REACTIONS (5)
  - GENITAL PRURITUS MALE [None]
  - PENILE INFECTION [None]
  - PENIS DISORDER [None]
  - REFUSAL OF TREATMENT BY PATIENT [None]
  - TESTICULAR ATROPHY [None]
